FAERS Safety Report 4651448-1 (Version None)
Quarter: 2005Q2

REPORT INFORMATION
  Report Type: 
  Country: None (occurrence: None)
  Receive Date: 20050404
  Receipt Date: 20050119
  Transmission Date: 20051028
  Serious: Yes (Hospitalization, Other)
  Sender: FDA-Public Use
  Company Number: USA050189071

PATIENT
  Age: 67 Year
  Sex: Female

DRUGS (15)
  1. CYMBALTA [Suspect]
     Dosage: 30 MG DAY
     Dates: start: 20041118, end: 20041224
  2. HYDROCHLOROTHIAZIDE [Concomitant]
  3. MULTIVITAMINS W/MINERALS [Concomitant]
  4. REMERON (MIRTAZAPINE ORIFARM) [Concomitant]
  5. ASPIRIN W/DIPYRIDAMOLE [Concomitant]
  6. ACETAMINOPHEN AND CODEINE NO. 3 [Concomitant]
  7. ATIVAN [Concomitant]
  8. COUMADIN [Concomitant]
  9. LIPITOR [Concomitant]
  10. COLACE (DOCUSATE SODIUM) [Concomitant]
  11. REGLAN (METOGLOPRAMIDE HYDROCHLORIDE) [Concomitant]
  12. ACETAMINOPHEN AND HYDROCODONE BITARTRATE [Concomitant]
  13. TEQUIN [Concomitant]
  14. VALIUM [Concomitant]
  15. TRAZADONE (TRAZODONE) [Concomitant]

REACTIONS (5)
  - ABDOMINAL PAIN [None]
  - HEADACHE [None]
  - NAUSEA [None]
  - SUICIDE ATTEMPT [None]
  - VOMITING [None]
